FAERS Safety Report 10222163 (Version 1)
Quarter: 2014Q2

REPORT INFORMATION
  Report Type: Spontaneous
  Country: US (occurrence: None)
  Receive Date: 20140606
  Receipt Date: 20140606
  Transmission Date: 20141212
  Serious: Yes (Death)
  Sender: FDA-Public Use
  Company Number: None

PATIENT
  Age: 56 Year
  Sex: Female

DRUGS (13)
  1. ALLOPURINOL [Suspect]
     Indication: GOUT
     Route: 048
     Dates: start: 20130917, end: 20131020
  2. GABAPENTIN [Concomitant]
  3. ISENTRESS [Concomitant]
  4. LISINOPRIL [Concomitant]
  5. NORVASC [Concomitant]
  6. LASIX [Concomitant]
  7. NORVIR [Concomitant]
  8. OXYCODONE [Concomitant]
  9. REYATAZ [Concomitant]
  10. VENTOLIN HFA [Concomitant]
  11. ABACAVIR [Concomitant]
  12. DULOXETINE [Concomitant]
  13. DUCOLAX STOLL SOFTENER [Concomitant]

REACTIONS (2)
  - Angioedema [None]
  - Toxic epidermal necrolysis [None]
